FAERS Safety Report 5419038-0 (Version None)
Quarter: 2007Q3

REPORT INFORMATION
  Report Type: 
  Country: None (occurrence: None)
  Receive Date: 20070820
  Receipt Date: 20070810
  Transmission Date: 20080115
  Serious: Yes (Hospitalization)
  Sender: FDA-Public Use
  Company Number: PHBS2007JP12834

PATIENT
  Age: 60 Year
  Sex: Male

DRUGS (1)
  1. DICLOFENAC SODIUM [Suspect]
     Indication: NECK PAIN
     Dosage: 50 MG/DAY
     Route: 054
     Dates: start: 20050201

REACTIONS (8)
  - ALTERED STATE OF CONSCIOUSNESS [None]
  - BLOOD PH DECREASED [None]
  - COUGH [None]
  - DYSPNOEA [None]
  - JAPAN COMA SCALE ABNORMAL [None]
  - PCO2 DECREASED [None]
  - STATUS ASTHMATICUS [None]
  - STRIDOR [None]
